FAERS Safety Report 6515710-X (Version None)
Quarter: 2009Q4

REPORT INFORMATION
  Report Type: 
  Country: None (occurrence: None)
  Receive Date: 20091223
  Receipt Date: 20091222
  Transmission Date: 20100525
  Serious: Yes (Hospitalization)
  Sender: FDA-Public Use
  Company Number: US-B.I. PHARMACEUTICALS,INC./RIDGEFIELD-2009-BP-14661BP

PATIENT
  Age: 77 Year
  Sex: Female

DRUGS (2)
  1. SPIRIVA [Suspect]
     Indication: CHRONIC OBSTRUCTIVE PULMONARY DISEASE
     Dosage: 18 MCG
     Route: 055
     Dates: start: 20040101
  2. CHLORTHALIDONE [Concomitant]
     Indication: HYPERTENSION

REACTIONS (5)
  - BLOOD CHOLESTEROL INCREASED [None]
  - COLONOSCOPY [None]
  - GASTROINTESTINAL HAEMORRHAGE [None]
  - OPTIC NERVE SHEATH HAEMORRHAGE [None]
  - VISUAL ACUITY REDUCED [None]
